FAERS Safety Report 6836843-4 (Version None)
Quarter: 2010Q3

REPORT INFORMATION
  Report Type: 
  Country: None (occurrence: None)
  Receive Date: 20100713
  Receipt Date: 20070417
  Transmission Date: 20110219
  Serious: No
  Sender: FDA-Public Use
  Company Number: US-PFIZER INC-2007035601

PATIENT
  Sex: Male

DRUGS (4)
  1. CHANTIX [Suspect]
     Indication: SMOKING CESSATION THERAPY
     Dates: start: 20070214
  2. KLONOPIN [Concomitant]
     Indication: PAIN
  3. LORTAB [Concomitant]
     Indication: PAIN
  4. ZOLOFT [Concomitant]

REACTIONS (1)
  - FALSE NEGATIVE INVESTIGATION RESULT [None]
